FAERS Safety Report 11860188 (Version 1)
Quarter: 2015Q4

REPORT INFORMATION
  Report Type: Report from Study
  Country: US (occurrence: US)
  Receive Date: 20151222
  Receipt Date: 20151222
  Transmission Date: 20160305
  Serious: Yes (Other)
  Sender: FDA-Public Use
  Company Number: US-ACTELION-A-US2015-128767

PATIENT
  Age: 74 Year
  Sex: Male

DRUGS (1)
  1. MACITENTAN [Suspect]
     Active Substance: MACITENTAN
     Indication: PULMONARY ARTERIAL HYPERTENSION
     Dosage: 10 MG, QD
     Route: 048
     Dates: start: 20151119

REACTIONS (4)
  - Basal cell carcinoma [Unknown]
  - Fluid retention [Unknown]
  - Skin neoplasm excision [Unknown]
  - Peripheral swelling [Unknown]
